FAERS Safety Report 8125041-2 (Version None)
Quarter: 2012Q1

REPORT INFORMATION
  Report Type: 
  Country: None (occurrence: None)
  Receive Date: 20120209
  Receipt Date: 20120208
  Transmission Date: 20120608
  Serious: Yes (Other)
  Sender: FDA-Public Use
  Company Number: US-BAYER-2012-012863

PATIENT
  Age: 30 Year
  Sex: Female

DRUGS (3)
  1. YAZ [Suspect]
     Dosage: UNK
     Dates: start: 20091001, end: 20100601
  2. DROSPIRENONE AND ETHINYL ESTRADIOL [Suspect]
     Dosage: UNK
     Dates: start: 20100601, end: 20100901
  3. YAZ [Suspect]
     Dosage: UNK
     Dates: start: 20080317, end: 20090101

REACTIONS (2)
  - CHOLELITHIASIS [None]
  - INJURY [None]
